FAERS Safety Report 6678662-8 (Version None)
Quarter: 2010Q2

REPORT INFORMATION
  Report Type: 
  Country: None (occurrence: None)
  Receive Date: 20100413
  Receipt Date: 20100331
  Transmission Date: 20101027
  Serious: Yes (Other)
  Sender: FDA-Public Use
  Company Number: FI-PFIZER INC-2010040849

PATIENT
  Sex: Female

DRUGS (2)
  1. ZELDOX [Suspect]
     Indication: PERSONALITY DISORDER
     Dosage: 40 MG, 1X/DAY
     Dates: start: 20100201, end: 20100101
  2. ZELDOX [Suspect]
     Dosage: 40 MG, 2X/DAY
     Dates: start: 20100101, end: 20100101

REACTIONS (3)
  - EXTRASYSTOLES [None]
  - FATIGUE [None]
  - MUSCLE SPASMS [None]
